FAERS Safety Report 10819534 (Version 1)
Quarter: 2015Q1

REPORT INFORMATION
  Report Type: Report from Study
  Country: US (occurrence: US)
  Receive Date: 20150218
  Receipt Date: 20150218
  Transmission Date: 20150721
  Serious: No
  Sender: FDA-Public Use
  Company Number: US-ABBVIE-14K-163-1297945-00

PATIENT
  Age: 61 Year
  Sex: Female

DRUGS (4)
  1. PRILOSEC [Concomitant]
     Active Substance: OMEPRAZOLE MAGNESIUM
     Indication: OESOPHAGITIS
  2. PROZAC [Concomitant]
     Active Substance: FLUOXETINE HYDROCHLORIDE
     Indication: ANXIETY
     Dosage: EVERY DAY; TAKE IT SPORADICALLY
  3. HUMIRA [Suspect]
     Active Substance: ADALIMUMAB
     Indication: RHEUMATOID ARTHRITIS
     Route: 065
     Dates: start: 20141001
  4. VOLTAREN [Concomitant]
     Active Substance: DICLOFENAC SODIUM
     Indication: INFLAMMATION
     Dosage: NOT TAKING VOLTAREN DAILY BUT STARTED TAKING IT AS PRESCRIBED 10 DAYS AGO
     Dates: start: 20141003

REACTIONS (10)
  - Wrong technique in drug usage process [Unknown]
  - Incorrect dose administered [Unknown]
  - Gait disturbance [Unknown]
  - Injection site erythema [Recovering/Resolving]
  - Drug effect delayed [Unknown]
  - Injection site pain [Recovered/Resolved]
  - Pain in extremity [Recovering/Resolving]
  - Injection site swelling [Unknown]
  - Arthralgia [Recovering/Resolving]
  - Injury associated with device [Unknown]

NARRATIVE: CASE EVENT DATE: 20141003
